FAERS Safety Report 25263539 (Version 1)
Quarter: 2025Q2

REPORT INFORMATION
  Report Type: Spontaneous
  Country: US (occurrence: US)
  Receive Date: 20250502
  Receipt Date: 20250502
  Transmission Date: 20250716
  Serious: Yes (Hospitalization)
  Sender: MYLAN
  Company Number: US-MYLANLABS-2025M1037285

PATIENT
  Age: 39 Year
  Sex: Female

DRUGS (3)
  1. PREDNISONE [Suspect]
     Active Substance: PREDNISONE
     Indication: Vogt-Koyanagi-Harada disease
     Dosage: 60 MILLIGRAM, QD
  2. PREDNISONE [Suspect]
     Active Substance: PREDNISONE
  3. METFORMIN [Suspect]
     Active Substance: METFORMIN HYDROCHLORIDE
     Indication: Hyperglycaemia

REACTIONS (6)
  - Hyperglycaemia [Unknown]
  - Type 2 diabetes mellitus [Unknown]
  - Hyperglycaemic hyperosmolar nonketotic syndrome [Unknown]
  - Sinusitis fungal [Unknown]
  - Mucormycosis [Unknown]
  - Drug ineffective [Unknown]
